FAERS Safety Report 26110334 (Version 2)
Quarter: 2025Q4

REPORT INFORMATION
  Report Type: Spontaneous
  Country: US (occurrence: US)
  Receive Date: 20251202
  Receipt Date: 20251215
  Transmission Date: 20260118
  Serious: Yes (Other)
  Sender: ABBVIE
  Company Number: US-ABBVIE-6566441

PATIENT
  Sex: Female

DRUGS (1)
  1. REFRESH OPTIVE MEGA-3 [Suspect]
     Active Substance: CARBOXYMETHYLCELLULOSE SODIUM\GLYCERIN\POLYSORBATE 80
     Indication: Hypovitaminosis
     Dosage: UNKNOWN
     Route: 047

REACTIONS (5)
  - Cardiomyopathy [Unknown]
  - Eye irritation [Unknown]
  - Off label use [Unknown]
  - Mitral valve repair [Unknown]
  - Eye disorder [Unknown]
